FAERS Safety Report 8467879-8 (Version None)
Quarter: 2012Q2

REPORT INFORMATION
  Report Type: 
  Country: None (occurrence: None)
  Receive Date: 20120626
  Receipt Date: 20120625
  Transmission Date: 20120825
  Serious: Yes (Hospitalization)
  Sender: FDA-Public Use
  Company Number: DE-BAYER-2012-059462

PATIENT
  Age: 44 Year
  Sex: Female
  Weight: 70 kg

DRUGS (1)
  1. ULTRAVIST 150 [Suspect]
     Dosage: 80 ML, ONCE
     Route: 042
     Dates: start: 20120601, end: 20120601

REACTIONS (6)
  - SWELLING FACE [None]
  - PRURITUS [None]
  - LARYNGEAL OEDEMA [None]
  - DYSPHONIA [None]
  - RASH PUSTULAR [None]
  - DYSPNOEA [None]
